FAERS Safety Report 17314932 (Version 2)
Quarter: 2020Q1

REPORT INFORMATION
  Report Type: Spontaneous
  Country: US (occurrence: US)
  Receive Date: 20200124
  Receipt Date: 20200124
  Transmission Date: 20200409
  Serious: No
  Sender: FDA-Public Use
  Company Number: US-PCCINC-2019-PEL-000292

PATIENT

DRUGS (3)
  1. GABLOFEN [Suspect]
     Active Substance: BACLOFEN
     Indication: MUSCLE SPASTICITY
     Dosage: 150 MICROGRAM, PER DAY
     Route: 037
  2. BACLOFEN. [Concomitant]
     Active Substance: BACLOFEN
     Indication: PRODUCT USED FOR UNKNOWN INDICATION
     Dosage: UNK
     Route: 048
  3. GABLOFEN [Suspect]
     Active Substance: BACLOFEN
     Indication: SPINAL CORD INJURY
     Dosage: UNK

REACTIONS (5)
  - Device malfunction [Recovered/Resolved]
  - Muscle spasticity [Not Recovered/Not Resolved]
  - Muscle spasms [Recovered/Resolved]
  - Muscle twitching [Recovered/Resolved]
  - Device infusion issue [Recovered/Resolved]

NARRATIVE: CASE EVENT DATE: 20191014
